FAERS Safety Report 8405787-9 (Version None)
Quarter: 2012Q2

REPORT INFORMATION
  Report Type: 
  Country: None (occurrence: None)
  Receive Date: 20120604
  Receipt Date: 20120529
  Transmission Date: 20120825
  Serious: No
  Sender: FDA-Public Use
  Company Number: US-PFIZER INC-2012128816

PATIENT
  Sex: Male

DRUGS (1)
  1. VFEND [Suspect]
     Indication: FUNGAL INFECTION
     Dosage: 200 MG, 2X/DAY
     Dates: start: 20111116, end: 20120521

REACTIONS (1)
  - DRUG INTERACTION [None]
